FAERS Safety Report 23962709 (Version 2)
Quarter: 2024Q2

REPORT INFORMATION
  Report Type: Spontaneous
  Country: US (occurrence: US)
  Receive Date: 20240611
  Receipt Date: 20240611
  Transmission Date: 20240715
  Serious: No
  Sender: FDA-Public Use
  Company Number: US-GALDERMA-US2024006871

PATIENT

DRUGS (5)
  1. PROACTIV MD ADAPALENE ACNE TREATMENT [Suspect]
     Active Substance: ADAPALENE
     Indication: Acne
     Dosage: 1 DOSAGE FORM, QD, ONCE A DAY
     Route: 061
     Dates: start: 2023
  2. Proactiv MD Ultra Gentle Cleanser [Concomitant]
     Indication: Acne
     Dosage: 1 DOSAGE FORM, QD, ONCE A DAY
     Route: 061
     Dates: start: 2023
  3. COSMETICS [Concomitant]
     Active Substance: COSMETICS
     Indication: Acne
     Dosage: 1 DOSAGE FORM, QD, ONCE A DAY
     Route: 061
     Dates: start: 2023
  4. COSMETICS [Concomitant]
     Active Substance: COSMETICS
     Indication: Acne
     Dosage: 1 DOSAGE FORM, QD, ONCE A DAY
     Route: 061
     Dates: start: 2023
  5. COSMETICS [Concomitant]
     Active Substance: COSMETICS
     Indication: Acne
     Dosage: 1 DOSAGE FORM, QD, ONCE A DAY
     Route: 061
     Dates: start: 2023

REACTIONS (1)
  - Drug ineffective [Unknown]
